FAERS Safety Report 13921829 (Version 1)
Quarter: 2017Q3

REPORT INFORMATION
  Report Type: Report from Study
  Country: US (occurrence: US)
  Receive Date: 20170830
  Receipt Date: 20170830
  Transmission Date: 20171127
  Serious: Yes (Other)
  Sender: FDA-Public Use
  Company Number: US-ACTELION-A-NJ2017-158698

PATIENT
  Age: 50 Year
  Sex: Female

DRUGS (16)
  1. CARTIA XT [Concomitant]
     Active Substance: DILTIAZEM HYDROCHLORIDE
  2. ATORVASTATIN [Concomitant]
     Active Substance: ATORVASTATIN
  3. LEVOTHYROXIN [Concomitant]
     Active Substance: LEVOTHYROXINE
  4. NICODERM CQ [Concomitant]
     Active Substance: NICOTINE
  5. SPIRIVA [Concomitant]
     Active Substance: TIOTROPIUM BROMIDE MONOHYDRATE
  6. TRACLEER [Suspect]
     Active Substance: BOSENTAN
     Indication: PULMONARY ARTERIAL HYPERTENSION
     Dosage: 125 MG, BID
     Route: 048
     Dates: start: 20161103
  7. CALCIUM [Concomitant]
     Active Substance: CALCIUM
  8. CARDIZEM [Concomitant]
     Active Substance: DILTIAZEM HYDROCHLORIDE
  9. REVATIO [Concomitant]
     Active Substance: SILDENAFIL CITRATE
  10. IRON [Concomitant]
     Active Substance: IRON
  11. WARFARIN [Concomitant]
     Active Substance: WARFARIN
  12. VENTOLIN [Concomitant]
     Active Substance: ALBUTEROL SULFATE
  13. TUMS [Concomitant]
     Active Substance: CALCIUM CARBONATE
  14. UPTRAVI [Concomitant]
     Active Substance: SELEXIPAG
  15. ALBUTEROL. [Concomitant]
     Active Substance: ALBUTEROL
  16. FUROSEMIDE. [Concomitant]
     Active Substance: FUROSEMIDE

REACTIONS (1)
  - Seizure [Unknown]
